FAERS Safety Report 19768368 (Version 1)
Quarter: 2021Q3

REPORT INFORMATION
  Report Type: Spontaneous
  Country: US (occurrence: US)
  Receive Date: 20210831
  Receipt Date: 20210831
  Transmission Date: 20211014
  Serious: Yes (Hospitalization, Other)
  Sender: FDA-Public Use
  Company Number: US-BAYER-2021-197843

PATIENT
  Age: 15 Year
  Sex: Male

DRUGS (9)
  1. ARIPIPRAZOLE. [Concomitant]
     Active Substance: ARIPIPRAZOLE
  2. MIRALAX [Suspect]
     Active Substance: POLYETHYLENE GLYCOL 3350
     Indication: ABDOMINAL DISTENSION
  3. PFIZER?BIONTECH COVID?19 VACCINE [Concomitant]
     Active Substance: TOZINAMERAN
  4. BUSPIRONE [Concomitant]
     Active Substance: BUSPIRONE HYDROCHLORIDE
  5. CLEAR COQ10 [Concomitant]
  6. FLINTSTONES COMPLETE [Suspect]
     Active Substance: VITAMINS
     Indication: VITAMIN SUPPLEMENTATION
  7. RISPERIDONE. [Concomitant]
     Active Substance: RISPERIDONE
  8. SERTRALINE [Concomitant]
     Active Substance: SERTRALINE HYDROCHLORIDE
  9. NORDITROPIN [Concomitant]
     Active Substance: SOMATROPIN

REACTIONS (13)
  - Myocarditis [None]
  - Pleural effusion [None]
  - Type 1 diabetes mellitus [None]
  - Respiratory failure [None]
  - Cardiac failure [None]
  - Heart injury [None]
  - Pneumonia [None]
  - Drug ineffective for unapproved indication [None]
  - Pneumothorax [None]
  - Abdominal distension [None]
  - Renal injury [None]
  - Abdominal pain upper [None]
  - Abdominal rigidity [None]
